FAERS Safety Report 6151914-6 (Version None)
Quarter: 2009Q2

REPORT INFORMATION
  Report Type: 
  Country: None (occurrence: None)
  Receive Date: 20090410
  Receipt Date: 20090326
  Transmission Date: 20091009
  Serious: Yes (Death)
  Sender: FDA-Public Use
  Company Number: FR-MERCK-0807FRA00055B1

PATIENT
  Age: 0 Day
  Sex: Male

DRUGS (4)
  1. ISENTRESS [Suspect]
     Indication: HIV INFECTION
     Route: 064
     Dates: start: 20070713
  2. PREZISTA [Concomitant]
     Indication: HIV INFECTION
     Route: 064
     Dates: start: 20070713
  3. ETRAVIRINE [Concomitant]
     Indication: HIV INFECTION
     Route: 064
     Dates: start: 20070713
  4. NORVIR [Concomitant]
     Indication: HIV INFECTION
     Route: 064
     Dates: start: 20070713

REACTIONS (1)
  - INTRA-UTERINE DEATH [None]
